FAERS Safety Report 23243162 (Version 2)
Quarter: 2023Q4

REPORT INFORMATION
  Report Type: Report from Study
  Country: US (occurrence: US)
  Receive Date: 20231130
  Receipt Date: 20231207
  Transmission Date: 20240110
  Serious: Yes (Hospitalization, Other)
  Sender: FDA-Public Use
  Company Number: US-ALXN-A202017404AA

PATIENT
  Age: 3 Year
  Sex: Female

DRUGS (192)
  1. KANUMA [Suspect]
     Active Substance: SEBELIPASE ALFA
     Indication: Lysosomal acid lipase deficiency
     Dosage: 3 MILLIGRAM/KILOGRAM, QW
     Route: 042
     Dates: start: 20170714, end: 201803
  2. KANUMA [Suspect]
     Active Substance: SEBELIPASE ALFA
     Dosage: 5 MILLIGRAM/KILOGRAM, QW
     Route: 058
     Dates: start: 20180315, end: 20210716
  3. KANUMA [Suspect]
     Active Substance: SEBELIPASE ALFA
     Dosage: 40 MILLILITER, QW
     Route: 042
  4. KANUMA [Suspect]
     Active Substance: SEBELIPASE ALFA
     Dosage: 60 MILLIGRAM, EVERY 10 DAYS
     Route: 042
  5. KANUMA [Suspect]
     Active Substance: SEBELIPASE ALFA
     Dosage: UNK UNK, Q3W
     Route: 065
  6. ACETAMINOPHEN [Concomitant]
     Active Substance: ACETAMINOPHEN
     Indication: Product used for unknown indication
     Dosage: 12 MILLIGRAM/KILOGRAM
     Route: 048
  7. ACETAMINOPHEN [Concomitant]
     Active Substance: ACETAMINOPHEN
     Dosage: 120 MILLIGRAM, PRN
     Route: 042
  8. MAGNESIUM SULFATE [Concomitant]
     Active Substance: MAGNESIUM SULFATE\MAGNESIUM SULFATE HEPTAHYDRATE
     Indication: Product used for unknown indication
     Dosage: 25 MG/KG, 272.5 MG/KG IN D5W 21.8 ML INFUSION, ONCE
     Route: 042
  9. ALBUMIN HUMAN [Concomitant]
     Active Substance: ALBUMIN HUMAN
     Indication: Product used for unknown indication
     Dosage: 6.25 G, Q6H
     Route: 042
  10. VITAMINS [Concomitant]
     Active Substance: VITAMINS
     Indication: Hypovitaminosis
     Dosage: 60 ML, (1 ML BY NG TUBE ROUTE DAILY)
     Route: 065
  11. CALCIUM CARBONATE [Concomitant]
     Active Substance: CALCIUM CARBONATE
     Indication: Hypocalcaemia
     Dosage: 2.5 ML, TID (1250MG/5ML)
     Route: 048
  12. CALCIUM CARBONATE [Concomitant]
     Active Substance: CALCIUM CARBONATE
     Dosage: 625 MG, TID
     Route: 048
  13. ATIVAN [Concomitant]
     Active Substance: LORAZEPAM
     Indication: Sedative therapy
     Dosage: 0.3 MG, QHS
     Route: 048
  14. ATIVAN [Concomitant]
     Active Substance: LORAZEPAM
     Indication: Nausea
     Dosage: 3 MG, PRN
     Route: 042
  15. ATIVAN [Concomitant]
     Active Substance: LORAZEPAM
     Dosage: 0.8 MG, PRN
     Route: 042
  16. EPIPEN [Concomitant]
     Active Substance: EPINEPHRINE
     Indication: Anaphylaxis treatment
     Dosage: 0.3 UNK, PRN
     Route: 058
  17. NEUTRA PHOS K [Concomitant]
     Active Substance: POTASSIUM PHOSPHATE, DIBASIC\POTASSIUM PHOSPHATE, MONOBASIC
     Indication: Hypophosphataemia
     Dosage: 25 MG/ML, SOLN
     Route: 065
  18. NEUTRA PHOS K [Concomitant]
     Active Substance: POTASSIUM PHOSPHATE, DIBASIC\POTASSIUM PHOSPHATE, MONOBASIC
     Dosage: 85 MG, TID (NASTROGASTRIC TUBE)
     Route: 050
  19. CITRIC ACID, 1-STEARYL ESTER\SODIUM CITRATE [Concomitant]
     Active Substance: CITRIC ACID, 1-STEARYL ESTER\SODIUM CITRATE
     Indication: Metabolic acidosis
     Dosage: 10 ML, BID
     Route: 048
  20. CITRIC ACID, 1-STEARYL ESTER\SODIUM CITRATE [Concomitant]
     Active Substance: CITRIC ACID, 1-STEARYL ESTER\SODIUM CITRATE
     Indication: Malabsorption
  21. VITAMIN D [Concomitant]
     Active Substance: VITAMIN D NOS
     Indication: Vitamin D deficiency
     Dosage: 4000 UT, QD
     Route: 048
  22. VITAMIN D [Concomitant]
     Active Substance: VITAMIN D NOS
     Dosage: 2000 UT, UNK
     Route: 048
  23. FERROUS SULFATE [Concomitant]
     Active Substance: FERROUS SULFATE
     Indication: Iron deficiency
     Dosage: 2 ML, QD
     Route: 048
  24. FERROUS SULFATE [Concomitant]
     Active Substance: FERROUS SULFATE
     Indication: Anaemia
     Dosage: 240 MG, QD
     Route: 048
  25. FERROUS SULFATE [Concomitant]
     Active Substance: FERROUS SULFATE
     Dosage: 30 MG, BID
     Route: 065
  26. ACYCLOVIR [Concomitant]
     Active Substance: ACYCLOVIR
     Indication: Product used for unknown indication
     Dosage: 136.5 MG, UNK
     Route: 042
     Dates: start: 20210224
  27. ACYCLOVIR [Concomitant]
     Active Substance: ACYCLOVIR
     Dosage: 136.5 MG, UNK
     Route: 042
     Dates: start: 20210225
  28. MORPHINE [Concomitant]
     Active Substance: MORPHINE
     Indication: Pain
     Dosage: 0.15 MG, UNK
     Route: 065
  29. MORPHINE [Concomitant]
     Active Substance: MORPHINE
     Dosage: 0.3 MG, PRN
     Route: 042
  30. MORPHINE [Concomitant]
     Active Substance: MORPHINE
     Dosage: 0.2 MG, PRN
     Route: 042
  31. CHLORHEXIDINE [Concomitant]
     Active Substance: CHLORHEXIDINE\CHLORHEXIDINE GLUCONATE
     Indication: Product used for unknown indication
     Dosage: 5 ML, UNK
     Route: 065
     Dates: start: 20210224
  32. CHLORHEXIDINE [Concomitant]
     Active Substance: CHLORHEXIDINE\CHLORHEXIDINE GLUCONATE
     Dosage: 5 ML, UNK
     Route: 042
     Dates: start: 20210225
  33. VIVONEX T.E.N. [Concomitant]
     Indication: Nutritional supplementation
     Dosage: 130 ML, FIVE TIMES IN A DAY
     Route: 050
  34. EPINEPHRINE [Concomitant]
     Active Substance: EPINEPHRINE
     Indication: Prophylaxis
     Dosage: 0.3 MG, PRN
     Route: 058
  35. EPINEPHRINE [Concomitant]
     Active Substance: EPINEPHRINE
     Indication: Cardiac arrest
     Dosage: 0.15 MG, SINGLE
     Route: 042
  36. AMLODIPINE [Concomitant]
     Active Substance: AMLODIPINE BESYLATE
     Indication: Hypertension
     Dosage: 2 ML, EVERY 24 HOURS
     Route: 065
  37. AMLODIPINE [Concomitant]
     Active Substance: AMLODIPINE BESYLATE
     Dosage: UNK, QD
     Route: 065
  38. URSODIOL [Concomitant]
     Active Substance: URSODIOL
     Indication: Cholelithiasis
     Dosage: 180 MG, Q12H (AS NEEDED)
     Route: 048
  39. URSODIOL [Concomitant]
     Active Substance: URSODIOL
     Indication: Prophylaxis
     Dosage: 3 ML, Q12H
     Route: 048
     Dates: start: 20210801
  40. URSODIOL [Concomitant]
     Active Substance: URSODIOL
     Dosage: UNK UNK, Q12H (AS NEEDED)
     Route: 050
  41. CHOLECALCIFEROL [Concomitant]
     Active Substance: CHOLECALCIFEROL
     Indication: Product used for unknown indication
     Dosage: 600 UT, QD
     Route: 048
  42. CYPROHEPTADINE HYDROCHLORIDE [Concomitant]
     Active Substance: CYPROHEPTADINE HYDROCHLORIDE
     Indication: Product used for unknown indication
     Dosage: 2 MG, TID
     Route: 045
  43. MYCAMINE [Concomitant]
     Active Substance: MICAFUNGIN SODIUM
     Indication: Prophylaxis
     Dosage: 1.5 MG/KG, QD
     Route: 042
  44. MYCAMINE [Concomitant]
     Active Substance: MICAFUNGIN SODIUM
     Dosage: 21 MG, UNK
     Route: 042
  45. MYCAMINE [Concomitant]
     Active Substance: MICAFUNGIN SODIUM
     Dosage: 75 MG, 2 X A WEEK
     Route: 042
  46. MYCAMINE [Concomitant]
     Active Substance: MICAFUNGIN SODIUM
     Dosage: 18 MG, UNK
     Route: 042
  47. REGLAN [Concomitant]
     Active Substance: METOCLOPRAMIDE HYDROCHLORIDE
     Indication: Constipation
     Dosage: 1.5 ML, TID
     Route: 048
  48. REGLAN [Concomitant]
     Active Substance: METOCLOPRAMIDE HYDROCHLORIDE
     Indication: Gastrointestinal motility disorder
     Dosage: 1.56 MG, Q8H
     Route: 048
  49. REGLAN [Concomitant]
     Active Substance: METOCLOPRAMIDE HYDROCHLORIDE
     Indication: Increased appetite
     Dosage: UNK
     Route: 065
  50. SODIUM CHLORIDE [Concomitant]
     Active Substance: SODIUM CHLORIDE
     Indication: Product used for unknown indication
     Dosage: 10 ML, UNK
     Route: 042
  51. KETAMINE [Concomitant]
     Active Substance: KETAMINE
     Indication: Abdominal pain
     Dosage: 100 MG, PRN
     Route: 042
  52. KETAMINE [Concomitant]
     Active Substance: KETAMINE
     Indication: Pain
     Dosage: 0.002 MG, UNK
     Route: 042
  53. MEROPENEM [Concomitant]
     Active Substance: MEROPENEM
     Indication: Infection
     Dosage: 300 MG, Q8H
     Route: 042
  54. MEROPENEM [Concomitant]
     Active Substance: MEROPENEM
     Dosage: 300 MG, Q12H
     Route: 042
  55. MEROPENEM [Concomitant]
     Active Substance: MEROPENEM
     Dosage: 260 MG, Q8H
     Route: 042
  56. ZOFRAN [Concomitant]
     Active Substance: ONDANSETRON HYDROCHLORIDE
     Indication: Nausea
     Dosage: 2 MG, Q8H
     Route: 042
  57. ZOFRAN [Concomitant]
     Active Substance: ONDANSETRON HYDROCHLORIDE
     Indication: Vomiting
     Dosage: 3.04 MG, BID
     Route: 048
  58. ZOFRAN [Concomitant]
     Active Substance: ONDANSETRON HYDROCHLORIDE
     Dosage: 2.3 MG, PRN
     Route: 048
  59. ZOFRAN [Concomitant]
     Active Substance: ONDANSETRON HYDROCHLORIDE
     Dosage: 2 MG, Q12H
     Route: 042
  60. PROTONIX [Concomitant]
     Active Substance: PANTOPRAZOLE SODIUM
     Indication: Prophylaxis
     Dosage: 10 MG, BID
     Route: 042
  61. PROTONIX [Concomitant]
     Active Substance: PANTOPRAZOLE SODIUM
     Dosage: 20 MG, QD
     Route: 042
  62. PENTAM [Concomitant]
     Active Substance: PENTAMIDINE ISETHIONATE
     Indication: Prophylaxis
     Dosage: 50.4 MG, PRN
     Route: 042
  63. PENTAM [Concomitant]
     Active Substance: PENTAMIDINE ISETHIONATE
     Dosage: 60 MG, Q2W
     Route: 042
  64. PENTAM [Concomitant]
     Active Substance: PENTAMIDINE ISETHIONATE
     Dosage: 46.8 MG, Q2W
     Route: 042
  65. PENTAM [Concomitant]
     Active Substance: PENTAMIDINE ISETHIONATE
     Dosage: UNK UNK, Q2W
     Route: 065
     Dates: end: 20211114
  66. ALBUTEROL [Concomitant]
     Active Substance: ALBUTEROL
     Indication: Tachypnoea
     Dosage: 2.5 MG, PRN
     Route: 055
  67. ALBUTEROL [Concomitant]
     Active Substance: ALBUTEROL
     Indication: Hyperkalaemia
     Dosage: 2.5 MG, SINGLE
     Route: 055
  68. POTASSIUM CHLORIDE [Concomitant]
     Active Substance: POTASSIUM CHLORIDE
     Indication: Hypokalaemia
     Dosage: 10 MEQ, PRN
     Route: 042
  69. POTASSIUM CHLORIDE [Concomitant]
     Active Substance: POTASSIUM CHLORIDE
     Dosage: 16.4 MEQ, UNK
     Route: 042
  70. POTASSIUM CHLORIDE [Concomitant]
     Active Substance: POTASSIUM CHLORIDE
     Dosage: 5.8 MEQ, UNK
     Route: 042
  71. ROMIPLOSTIM [Concomitant]
     Active Substance: ROMIPLOSTIM
     Indication: Immune thrombocytopenia
     Dosage: MCG, QW
     Route: 058
  72. ALBUMIN HUMAN [Concomitant]
     Active Substance: ALBUMIN HUMAN
     Indication: Nutritional supplementation
     Dosage: UNK, PRN
     Route: 042
  73. ALBUMIN HUMAN [Concomitant]
     Active Substance: ALBUMIN HUMAN
     Dosage: 15 G/KG, UNK
     Route: 042
  74. ALBUMIN HUMAN [Concomitant]
     Active Substance: ALBUMIN HUMAN
     Dosage: UNK UNK, PRN
     Route: 042
  75. ALBUMIN HUMAN [Concomitant]
     Active Substance: ALBUMIN HUMAN
     Dosage: 11.7 G, SINGLE
     Route: 042
  76. NORVASC [Concomitant]
     Active Substance: AMLODIPINE BESYLATE
     Indication: Hypertension
     Dosage: 2 MG, QD
     Route: 048
  77. NORVASC [Concomitant]
     Active Substance: AMLODIPINE BESYLATE
     Dosage: 1.5 MG, QD
     Route: 050
  78. DILAUDID [Concomitant]
     Active Substance: HYDROMORPHONE HYDROCHLORIDE
     Indication: Pain
     Dosage: 0.6 MG, PRN
     Route: 042
  79. DILAUDID [Concomitant]
     Active Substance: HYDROMORPHONE HYDROCHLORIDE
     Dosage: 0.23 MG, PRN
     Route: 042
  80. BENADRYL [Concomitant]
     Active Substance: DIPHENHYDRAMINE HYDROCHLORIDE
     Indication: Premedication
     Dosage: 15 MG, PRN
     Route: 042
  81. BENADRYL [Concomitant]
     Active Substance: DIPHENHYDRAMINE HYDROCHLORIDE
     Dosage: 11 MG, PRN
     Route: 065
  82. BENADRYL [Concomitant]
     Active Substance: DIPHENHYDRAMINE HYDROCHLORIDE
     Dosage: 14 MG, PRN
     Route: 042
  83. PEPCID [Concomitant]
     Active Substance: FAMOTIDINE
     Indication: Prophylaxis
     Dosage: 8.2 MG, BID
     Route: 042
  84. PEPCID [Concomitant]
     Active Substance: FAMOTIDINE
     Dosage: UNK UNK, Q12H
     Route: 042
  85. PEPCID [Concomitant]
     Active Substance: FAMOTIDINE
     Dosage: UNK MG, PRN
     Route: 042
  86. LASIX [Concomitant]
     Active Substance: FUROSEMIDE
     Indication: Polyuria
     Dosage: UNK, QD
     Route: 048
  87. LASIX [Concomitant]
     Active Substance: FUROSEMIDE
     Indication: Portal hypertension
     Dosage: 15 MG, PRN
     Route: 042
  88. LASIX [Concomitant]
     Active Substance: FUROSEMIDE
     Dosage: UNK,ML/HR,UNK
     Route: 042
  89. LASIX [Concomitant]
     Active Substance: FUROSEMIDE
     Dosage: 10 MG, PRN
     Route: 050
  90. LASIX [Concomitant]
     Active Substance: FUROSEMIDE
     Dosage: 20 MG, QD
     Route: 045
  91. GAMUNEX [Concomitant]
     Active Substance: HUMAN IMMUNOGLOBULIN G
     Indication: Immunosuppression
     Dosage: 5 G/KG, SINGLE
     Route: 042
  92. GAMUNEX [Concomitant]
     Active Substance: HUMAN IMMUNOGLOBULIN G
     Indication: Hypoglobulinaemia
  93. LABETALOL [Concomitant]
     Active Substance: LABETALOL\LABETALOL HYDROCHLORIDE
     Indication: Hypertension
     Dosage: 3 UNK, SINGLE
     Route: 042
  94. LABETALOL [Concomitant]
     Active Substance: LABETALOL\LABETALOL HYDROCHLORIDE
     Dosage: 2.8 MG, PRN
     Route: 042
  95. PREVACID [Concomitant]
     Active Substance: LANSOPRAZOLE
     Indication: Prophylaxis
     Dosage: 15 MG, QD
     Route: 048
  96. SOLU-MEDROL [Concomitant]
     Active Substance: METHYLPREDNISOLONE SODIUM SUCCINATE
     Indication: Premedication
     Dosage: 17 MG, PRN
     Route: 042
  97. SOLU-MEDROL [Concomitant]
     Active Substance: METHYLPREDNISOLONE SODIUM SUCCINATE
     Indication: Inflammation
     Dosage: 31.25 MG, Q12H
     Route: 042
  98. SOLU-MEDROL [Concomitant]
     Active Substance: METHYLPREDNISOLONE SODIUM SUCCINATE
     Dosage: 67.5 MG, QD
     Route: 042
  99. SOLU-MEDROL [Concomitant]
     Active Substance: METHYLPREDNISOLONE SODIUM SUCCINATE
     Dosage: 4 MG, BID (WEANING EVERY MONDAY)
     Route: 042
  100. POTASSIUM PHOSPHATE [Concomitant]
     Active Substance: POTASSIUM PHOSPHATE
     Indication: Hypovitaminosis
     Dosage: 2.445 MMOL, PRN
     Route: 042
  101. PROBIOTICS NOS [Concomitant]
     Active Substance: PROBIOTICS NOS
     Indication: Prophylaxis
     Dosage: 5 ML, QD
     Route: 048
  102. XIFAXAN [Concomitant]
     Active Substance: RIFAXIMIN
     Indication: Gastrointestinal bacterial overgrowth
     Dosage: 200 MG, TID
  103. SODIUM BICARBONATE [Concomitant]
     Active Substance: SODIUM BICARBONATE
     Indication: Hyperkalaemia
     Dosage: 8.25 MEQ, PRN
     Route: 042
  104. SODIUM BICARBONATE [Concomitant]
     Active Substance: SODIUM BICARBONATE
     Indication: Cardiac arrest
     Dosage: 15 MEQ, SINGLE
     Route: 042
  105. SODIUM BICARBONATE [Concomitant]
     Active Substance: SODIUM BICARBONATE
     Dosage: 5.75 MEQ, SINGLE
     Route: 042
  106. LOVENOX [Concomitant]
     Active Substance: ENOXAPARIN SODIUM
     Indication: Portal vein thrombosis
     Dosage: 25 MG, Q12H
     Route: 058
  107. LOVENOX [Concomitant]
     Active Substance: ENOXAPARIN SODIUM
     Dosage: UNK, BID
     Route: 065
     Dates: start: 20211023
  108. APRESOLINE HYDROCHLORIDE [Concomitant]
     Active Substance: HYDRALAZINE HYDROCHLORIDE
     Indication: Hypertension
     Dosage: 3 MG, PRN
     Route: 042
  109. FAT EMULSION NOS [Concomitant]
     Active Substance: EGG PHOSPHOLIPIDS\SAFFLOWER OIL\SOYBEAN OIL
     Indication: Nutritional supplementation
     Dosage: 5.9 G, QD
     Route: 042
  110. METHADONE [Concomitant]
     Active Substance: METHADONE HYDROCHLORIDE
     Indication: Pain
     Dosage: 0.8 MG, PRN
     Route: 048
  111. METHADONE [Concomitant]
     Active Substance: METHADONE HYDROCHLORIDE
     Dosage: UNK, UNK, Q6H
     Route: 065
  112. METHADONE [Concomitant]
     Active Substance: METHADONE HYDROCHLORIDE
     Dosage: UNK, UNK, Q6H
     Route: 065
  113. BACTRIM [Concomitant]
     Active Substance: SULFAMETHOXAZOLE\TRIMETHOPRIM
     Indication: Prophylaxis
     Dosage: 40 MG, BID (3X A WEEK)
     Route: 048
     Dates: start: 20211116
  114. BACTRIM [Concomitant]
     Active Substance: SULFAMETHOXAZOLE\TRIMETHOPRIM
     Indication: Bacterial translocation
  115. BUMEX [Concomitant]
     Active Substance: BUMETANIDE
     Indication: Polyuria
     Dosage: 2 MG, Q6H
     Route: 042
  116. CALCIUM GLUCONATE [Concomitant]
     Active Substance: CALCIUM GLUCONATE
     Indication: Hypocalcaemia
     Dosage: 650 MG, SINGLE
     Route: 042
  117. NIMBEX [Concomitant]
     Active Substance: CISATRACURIUM BESYLATE
     Indication: Lung assist device therapy
     Dosage: UNK
     Route: 042
  118. NIMBEX [Concomitant]
     Active Substance: CISATRACURIUM BESYLATE
     Indication: Endotracheal intubation
  119. PRECEDEX [Concomitant]
     Active Substance: DEXMEDETOMIDINE HYDROCHLORIDE
     Indication: Sedation
     Dosage: UNK
     Route: 042
  120. DOBUTAMINE [Concomitant]
     Active Substance: DOBUTAMINE HYDROCHLORIDE
     Indication: Cardiac arrest
     Dosage: UNK,MCG/KG/MIN,UNK
     Route: 042
  121. EPOGEN [Concomitant]
     Active Substance: ERYTHROPOIETIN
     Indication: Anaemia
     Dosage: UNK, 3 X A WEEK
     Route: 058
  122. GENTAMICIN [Concomitant]
     Active Substance: GENTAMICIN
     Indication: Infection
     Dosage: 38 MG, QD
     Route: 042
  123. LEVAQUIN [Concomitant]
     Active Substance: LEVOFLOXACIN
     Indication: Infection
     Dosage: 150 MG, Q48HOURS
     Route: 042
  124. LEVAQUIN [Concomitant]
     Active Substance: LEVOFLOXACIN
     Dosage: 155 MG, Q12H
     Route: 042
  125. ZYVOX [Concomitant]
     Active Substance: LINEZOLID
     Indication: Infection
     Dosage: 150 MG, Q8H
     Route: 042
  126. VERSED [Concomitant]
     Active Substance: MIDAZOLAM HYDROCHLORIDE
     Indication: Sedation
     Dosage: UNK
     Route: 042
  127. VERSED [Concomitant]
     Active Substance: MIDAZOLAM HYDROCHLORIDE
     Indication: Endotracheal intubation
  128. CARDENE [Concomitant]
     Active Substance: NICARDIPINE HYDROCHLORIDE
     Indication: Hypertension
     Dosage: UNK
     Route: 042
  129. PRIMASOL [Concomitant]
     Indication: Dialysis
     Dosage: UNK MMOL, PRN
     Route: 042
  130. ZEMURON [Concomitant]
     Active Substance: ROCURONIUM BROMIDE
     Indication: Cardiac arrest
     Dosage: 15 MG, SINGLE
     Route: 042
  131. VASOPRESSIN [Concomitant]
     Active Substance: VASOPRESSIN
     Indication: Hypotension
     Dosage: UNK
     Route: 042
  132. THYMOGLOBULIN [Concomitant]
     Active Substance: LAPINE T-LYMPHOCYTE IMMUNE GLOBULIN
     Indication: Transplant rejection
     Dosage: UNK, QD
     Route: 042
  133. FLUDARA [Concomitant]
     Active Substance: FLUDARABINE PHOSPHATE
     Indication: Chemotherapy
     Dosage: 16.8 MG, QD (NASOGASTRIC)
     Route: 050
  134. FLUDARA [Concomitant]
     Active Substance: FLUDARABINE PHOSPHATE
     Indication: Bone marrow transplant
  135. EMEND                              /06343802/ [Concomitant]
     Indication: Chemotherapy
     Dosage: 47 MG, SINGLE
     Route: 042
  136. EMEND                              /06343802/ [Concomitant]
     Indication: Bone marrow transplant
  137. KYTRIL [Concomitant]
     Active Substance: GRANISETRON HYDROCHLORIDE
     Indication: Nausea
     Dosage: UNK,MCG, PRN
     Route: 042
  138. KYTRIL [Concomitant]
     Active Substance: GRANISETRON HYDROCHLORIDE
     Indication: Vomiting
  139. FENTANYL [Concomitant]
     Active Substance: FENTANYL\FENTANYL CITRATE
     Indication: Sedation
     Dosage: UNK MCG, UNK
     Route: 042
  140. FENTANYL [Concomitant]
     Active Substance: FENTANYL\FENTANYL CITRATE
     Indication: Endotracheal intubation
  141. SOLU-CORTEF [Concomitant]
     Active Substance: HYDROCORTISONE SODIUM SUCCINATE
     Indication: Premedication
     Dosage: 12 MG, PRN
     Route: 042
  142. SOLU-CORTEF [Concomitant]
     Active Substance: HYDROCORTISONE SODIUM SUCCINATE
     Dosage: 14 MG, SINGLE
     Route: 042
  143. ATARAX [Concomitant]
     Active Substance: HYDROXYZINE HYDROCHLORIDE
     Indication: Nausea
     Dosage: 7.74 UNK, UNK
     Route: 050
  144. ATARAX [Concomitant]
     Active Substance: HYDROXYZINE HYDROCHLORIDE
     Indication: Vomiting
  145. EVOMELA [Concomitant]
     Active Substance: MELPHALAN HYDROCHLORIDE
     Indication: Chemotherapy
     Dosage: 39 MG, QD
     Route: 042
  146. EVOMELA [Concomitant]
     Active Substance: MELPHALAN HYDROCHLORIDE
     Indication: Bone marrow transplant
  147. ZOSYN [Concomitant]
     Active Substance: PIPERACILLIN SODIUM\TAZOBACTAM SODIUM
     Indication: Infection
     Dosage: 7.55 ML, 100 MG/KG
     Route: 042
     Dates: start: 20210731
  148. ZOSYN [Concomitant]
     Active Substance: PIPERACILLIN SODIUM\TAZOBACTAM SODIUM
     Indication: Haemophilus infection
     Dosage: UNK MG, PRN
     Route: 042
  149. ZOSYN [Concomitant]
     Active Substance: PIPERACILLIN SODIUM\TAZOBACTAM SODIUM
     Dosage: 1586 MG, Q6H
     Route: 042
  150. ZOSYN [Concomitant]
     Active Substance: PIPERACILLIN SODIUM\TAZOBACTAM SODIUM
     Dosage: UNK UNK, Q6H
     Route: 042
  151. ZOSYN [Concomitant]
     Active Substance: PIPERACILLIN SODIUM\TAZOBACTAM SODIUM
     Dosage: UNK (Q6)
     Route: 042
     Dates: start: 20211029
  152. ZOSYN [Concomitant]
     Active Substance: PIPERACILLIN SODIUM\TAZOBACTAM SODIUM
     Dosage: UNK
     Route: 042
     Dates: start: 20211105
  153. ZOSYN [Concomitant]
     Active Substance: PIPERACILLIN SODIUM\TAZOBACTAM SODIUM
     Dosage: UNK
     Route: 042
     Dates: start: 20211109
  154. MAXIPIME [Concomitant]
     Active Substance: CEFEPIME HYDROCHLORIDE
     Indication: Infection
     Dosage: 700 MG, QD
     Route: 042
  155. PERIACTIN [Concomitant]
     Active Substance: CYPROHEPTADINE HYDROCHLORIDE
     Indication: Hypersensitivity
     Dosage: 2 MG, TID
     Route: 048
  156. INVANZ [Concomitant]
     Active Substance: ERTAPENEM SODIUM
     Indication: Infection
     Dosage: 210 MG, Q12H
     Route: 042
  157. DIURIL [Concomitant]
     Active Substance: CHLOROTHIAZIDE
     Indication: Polyuria
     Dosage: UNK MG, PRN
     Route: 048
  158. DIURIL [Concomitant]
     Active Substance: CHLOROTHIAZIDE
     Dosage: UNK UNK, Q6H
     Route: 042
  159. DIURIL [Concomitant]
     Active Substance: CHLOROTHIAZIDE
     Dosage: 63 MG, QD
     Route: 042
  160. DIURIL [Concomitant]
     Active Substance: CHLOROTHIAZIDE
     Dosage: 35 MG, Q6H
     Route: 042
  161. HYDRALAZINE [Concomitant]
     Active Substance: HYDRALAZINE HYDROCHLORIDE
     Indication: Hypertension
     Dosage: UNK MG, PRN
     Route: 042
  162. HYDRALAZINE [Concomitant]
     Active Substance: HYDRALAZINE HYDROCHLORIDE
     Dosage: UNK MG, QD
     Route: 042
  163. HYDRALAZINE [Concomitant]
     Active Substance: HYDRALAZINE HYDROCHLORIDE
     Dosage: 2.8 MG, Q6H
     Route: 042
  164. NYSTATIN [Concomitant]
     Active Substance: NYSTATIN
     Indication: Candida infection
     Dosage: 400000 UT, Q6H
     Route: 048
  165. GRANIX [Concomitant]
     Active Substance: TBO-FILGRASTIM
     Indication: Neutropenia
     Dosage: UNK, MCG,PRN
     Route: 042
  166. THIOTEPA [Concomitant]
     Active Substance: THIOTEPA
     Indication: Chemotherapy
     Dosage: 65 MG, QD
     Route: 042
  167. THIOTEPA [Concomitant]
     Active Substance: THIOTEPA
     Indication: Bone marrow transplant
  168. FLAGYL [Concomitant]
     Active Substance: METRONIDAZOLE\METRONIDAZOLE HYDROCHLORIDE
     Indication: Inflammation
     Dosage: 10 MG/KG, Q8H
     Route: 042
  169. FLAGYL [Concomitant]
     Active Substance: METRONIDAZOLE\METRONIDAZOLE HYDROCHLORIDE
     Indication: Infection
     Dosage: 150 MG, UNK
     Route: 042
     Dates: start: 20210731
  170. FLAGYL [Concomitant]
     Active Substance: METRONIDAZOLE\METRONIDAZOLE HYDROCHLORIDE
     Indication: Prophylaxis
     Dosage: UNK UNK, Q8H
     Route: 042
  171. FLAGYL [Concomitant]
     Active Substance: METRONIDAZOLE\METRONIDAZOLE HYDROCHLORIDE
     Dosage: UNK
     Route: 065
     Dates: start: 20211030
  172. Poly vi sol [Concomitant]
     Indication: Hypovitaminosis
     Dosage: 1 MG, QD
     Route: 048
  173. CLONIDINE [Concomitant]
     Active Substance: CLONIDINE
     Indication: Blood pressure increased
     Dosage: (0.2 MG/24 HR, ONE PATCH ON THE SKIN EVERY 7 DAYS)
     Route: 065
     Dates: start: 20210801
  174. CLONIDINE [Concomitant]
     Active Substance: CLONIDINE
     Indication: Withdrawal syndrome
     Dosage: 1 MG/24 HR, ONE PATCH ON THE SKIN EVERY 7 DAYS
     Route: 065
     Dates: start: 20210801
  175. CLONIDINE [Concomitant]
     Active Substance: CLONIDINE
     Indication: Hypertension
     Dosage: 150 MCG, Q8H
     Route: 050
  176. CLONIDINE [Concomitant]
     Active Substance: CLONIDINE
     Dosage: UNK, Q6H
     Route: 048
  177. CLONIDINE [Concomitant]
     Active Substance: CLONIDINE
     Dosage: 0.1 MG, QD
     Route: 061
  178. CLONIDINE [Concomitant]
     Active Substance: CLONIDINE
     Dosage: 0.1 MG, QW
     Route: 061
  179. CALCIUM CHLORIDE [Concomitant]
     Active Substance: CALCIUM CHLORIDE
     Indication: Cardiac arrest
     Dosage: 300 MG, SINGLE
     Route: 042
  180. SPIRONOLACTONE [Concomitant]
     Active Substance: SPIRONOLACTONE
     Indication: Polyuria
     Dosage: 25 MG, Q12H
     Route: 048
  181. SPIRONOLACTONE [Concomitant]
     Active Substance: SPIRONOLACTONE
     Dosage: 7.15 MG, Q12H (NASO GASTRIC)
     Route: 050
  182. TOBRAMYCIN [Concomitant]
     Active Substance: TOBRAMYCIN
     Indication: Infection
     Dosage: 100 MG, QD
     Route: 042
  183. MUCOMYST [Concomitant]
     Active Substance: ACETYLCYSTEINE
     Indication: Prophylaxis
     Dosage: UNK, QD
     Route: 050
  184. OMNIPEN [Concomitant]
     Active Substance: AMPICILLIN
     Indication: Infection
     Dosage: 780 MG, Q6H
     Route: 042
  185. CAMPATH [Concomitant]
     Active Substance: ALEMTUZUMAB
     Indication: Bone marrow transplant
     Dosage: 10 MG, QD
     Route: 042
  186. DIFLUCAN [Concomitant]
     Active Substance: FLUCONAZOLE
     Indication: Prophylaxis
     Dosage: 120 MG, QD
     Route: 048
  187. PREDNISOLONE [Concomitant]
     Active Substance: PREDNISOLONE
     Indication: Product used for unknown indication
     Dosage: 5 MG, BID (WEANING QMONDAYS)
     Route: 045
     Dates: start: 20211118
  188. PANTOPRAZOLE [Concomitant]
     Active Substance: PANTOPRAZOLE
     Indication: Product used for unknown indication
     Dosage: UNK
     Route: 065
  189. MICAFUNGIN [Concomitant]
     Active Substance: MICAFUNGIN SODIUM
     Indication: Prophylaxis
     Dosage: UNK, QHS
     Route: 042
  190. MICAFUNGIN [Concomitant]
     Active Substance: MICAFUNGIN SODIUM
     Dosage: UNK, Q2W
     Route: 065
     Dates: start: 20211122
  191. MUPIROCIN [Concomitant]
     Active Substance: MUPIROCIN
     Indication: Wound
     Dosage: UNK
     Route: 065
  192. ALDACTONE [Concomitant]
     Active Substance: SPIRONOLACTONE
     Indication: Portal hypertension
     Dosage: 50 MG, QD
     Route: 065

REACTIONS (9)
  - Pleural effusion [Recovered/Resolved]
  - Graft versus host disease [Recovered/Resolved]
  - Haematoma [Recovered/Resolved]
  - Acinetobacter infection [Recovered/Resolved]
  - Septic shock [Unknown]
  - Tooth abscess [Recovered/Resolved]
  - Diarrhoea [Not Recovered/Not Resolved]
  - Pyrexia [Not Recovered/Not Resolved]
  - Diarrhoea haemorrhagic [Unknown]

NARRATIVE: CASE EVENT DATE: 20201118
